FAERS Safety Report 8437667-7 (Version None)
Quarter: 2012Q2

REPORT INFORMATION
  Report Type: 
  Country: None (occurrence: None)
  Receive Date: 20120614
  Receipt Date: 20120508
  Transmission Date: 20120825
  Serious: No
  Sender: FDA-Public Use
  Company Number: US-AMGEN-USASP2012024471

PATIENT
  Age: 62 Year
  Sex: Female
  Weight: 66.667 kg

DRUGS (2)
  1. PROLIA [Suspect]
     Indication: OSTEOPOROSIS POSTMENOPAUSAL
     Dosage: 60 MG, Q6MO
     Route: 058
     Dates: start: 20110806
  2. PROLIA [Suspect]
     Dosage: UNK, Q6MO
     Route: 058
     Dates: start: 20120214

REACTIONS (2)
  - DERMATITIS [None]
  - PSORIASIS [None]
